FAERS Safety Report 7350080-9 (Version None)
Quarter: 2011Q1

REPORT INFORMATION
  Report Type: 
  Country: None (occurrence: None)
  Receive Date: 20110314
  Receipt Date: 20110303
  Transmission Date: 20110831
  Serious: Yes (Hospitalization)
  Sender: FDA-Public Use
  Company Number: A0833504A

PATIENT
  Age: 53 Year
  Sex: Male

DRUGS (4)
  1. AVANDIA [Suspect]
     Indication: DIABETES MELLITUS
     Dosage: 8MG PER DAY
     Route: 048
     Dates: start: 20040701, end: 20081201
  2. PLAVIX [Concomitant]
  3. LOTREL [Concomitant]
  4. METFORMIN [Concomitant]

REACTIONS (6)
  - FALL [None]
  - CEREBROVASCULAR ACCIDENT [None]
  - CEREBRAL INFARCTION [None]
  - HEMIPARESIS [None]
  - BLOOD PRESSURE INCREASED [None]
  - CEREBRAL ARTERY OCCLUSION [None]
